FAERS Safety Report 23449165 (Version 1)
Quarter: 2024Q1

REPORT INFORMATION
  Report Type: Spontaneous
  Country: US (occurrence: US)
  Receive Date: 20240128
  Receipt Date: 20240128
  Transmission Date: 20240410
  Serious: Yes (Other)
  Sender: FDA-Public Use
  Company Number: US-BEH-2024167756

PATIENT
  Sex: Male

DRUGS (2)
  1. HUMATE-P [Suspect]
     Active Substance: HUMAN COAGULATION FACTOR VIII/VON WILLEBRAND FACTOR COMPLEX
     Indication: Von Willebrand^s disease
     Dosage: 2977 INTERNATIONAL UNIT PRIOR TO PROCEDURE AND AT 12 AND 24 HOURS POST PROCEDURE
     Route: 042
     Dates: start: 20231107
  2. HUMATE-P [Suspect]
     Active Substance: HUMAN COAGULATION FACTOR VIII/VON WILLEBRAND FACTOR COMPLEX
     Dosage: 2977 INTERNATIONAL UNIT PRIOR TO PROCEDURE AND AT 12 AND 24 HOURS POST PROCEDURE
     Route: 042
     Dates: start: 20231107

REACTIONS (1)
  - Nasal septum deviation [Unknown]
